FAERS Safety Report 9436541 (Version 1)
Quarter: 2013Q3

REPORT INFORMATION
  Report Type: Spontaneous
  Country: FR (occurrence: FR)
  Receive Date: 20130802
  Receipt Date: 20130802
  Transmission Date: 20140515
  Serious: No
  Sender: FDA-Public Use
  Company Number: FR-OPTIMER-20130111

PATIENT
  Sex: Male

DRUGS (1)
  1. DIFICLIR [Suspect]
     Indication: CLOSTRIDIAL INFECTION
     Dosage: UNK
     Route: 050
     Dates: start: 201303

REACTIONS (1)
  - Off label use [Unknown]
